FAERS Safety Report 6820855-0 (Version None)
Quarter: 2010Q3

REPORT INFORMATION
  Report Type: 
  Country: None (occurrence: None)
  Receive Date: 20100707
  Receipt Date: 20070724
  Transmission Date: 20110219
  Serious: No
  Sender: FDA-Public Use
  Company Number: US-PFIZER INC-2007061327

PATIENT
  Sex: Male
  Weight: 81.65 kg

DRUGS (4)
  1. ZOLOFT [Suspect]
     Indication: DEPRESSION
     Dates: start: 20051001
  2. INSULIN [Concomitant]
  3. METHADONE [Concomitant]
  4. CARDIOVASCULAR SYSTEM DRUGS [Concomitant]

REACTIONS (1)
  - DRUG SCREEN POSITIVE [None]
